FAERS Safety Report 6308800-8 (Version None)
Quarter: 2009Q3

REPORT INFORMATION
  Report Type: 
  Country: None (occurrence: None)
  Receive Date: 20090813
  Receipt Date: 20080825
  Transmission Date: 20100115
  Serious: No
  Sender: FDA-Public Use
  Company Number: US-ALLERGAN-0810573US

PATIENT
  Sex: Male

DRUGS (3)
  1. COMBIGAN [Suspect]
     Indication: DRUG USE FOR UNKNOWN INDICATION
     Route: 047
  2. LUMIGAN [Suspect]
     Indication: DRUG USE FOR UNKNOWN INDICATION
     Route: 047
  3. PRED FORTE [Suspect]
     Indication: DRUG USE FOR UNKNOWN INDICATION
     Route: 047

REACTIONS (1)
  - OCULAR HYPERAEMIA [None]
